FAERS Safety Report 17939338 (Version 1)
Quarter: 2020Q2

REPORT INFORMATION
  Report Type: Spontaneous
  Country: CA (occurrence: CA)
  Receive Date: 20200624
  Receipt Date: 20200624
  Transmission Date: 20200714
  Serious: Yes (Other)
  Sender: FDA-Public Use
  Company Number: CA-ABBVIE-20K-028-3456740-00

PATIENT
  Age: 67 Year
  Sex: Female

DRUGS (2)
  1. METHOTREXATE. [Suspect]
     Active Substance: METHOTREXATE
     Indication: PRODUCT USED FOR UNKNOWN INDICATION
     Route: 065
  2. HUMIRA [Suspect]
     Active Substance: ADALIMUMAB
     Indication: PSORIASIS
     Route: 058

REACTIONS (7)
  - Drug ineffective [Unknown]
  - Depression [Unknown]
  - Intestinal perforation [Unknown]
  - Ovarian cancer [Unknown]
  - Arthralgia [Unknown]
  - Drug ineffective [Unknown]
  - Skin disorder [Unknown]

NARRATIVE: CASE EVENT DATE: 2010
